FAERS Safety Report 4490827-2 (Version None)
Quarter: 2004Q4

REPORT INFORMATION
  Report Type: 
  Country: None (occurrence: None)
  Receive Date: 20041027
  Receipt Date: 20041018
  Transmission Date: 20050328
  Serious: Yes (Hospitalization)
  Sender: FDA-Public Use
  Company Number: STA-AE-04-MTX-499

PATIENT
  Age: 53 Year
  Sex: Male

DRUGS (7)
  1. RHEUMATREX [Suspect]
     Indication: RHEUMATOID ARTHRITIS
     Dosage: 6 MG PER WEEK, ORAL
     Route: 048
     Dates: start: 20030618
  2. MOVER (ACTYARIT) [Suspect]
     Indication: RHEUMATOID ARTHRITIS
     Dosage: SEE IMAGE
     Route: 048
     Dates: start: 20031022, end: 20031216
  3. MOVER (ACTYARIT) [Suspect]
     Indication: RHEUMATOID ARTHRITIS
     Dosage: SEE IMAGE
     Route: 048
     Dates: start: 20031217
  4. PREDNISOLONE [Suspect]
     Indication: RHEUMATOID ARTHRITIS
     Dosage: 5 MG 1 X PER 1 DAY, ORAL
     Route: 048
     Dates: start: 20030312
  5. REMICADE [Suspect]
     Indication: RHEUMATOID ARTHRITIS
     Dosage: 5 MG 1 X PER 1 DAY, ORAL
     Route: 048
     Dates: start: 20030312
  6. VOLTAREN [Suspect]
     Indication: RHEUMATOID ARTHRITIS
     Dosage: 75 MG 1 X PER 1 DAY, ORAL
     Route: 048
     Dates: start: 20030312
  7. SELBEX (TEPRENONE) [Concomitant]

REACTIONS (3)
  - ARTHRITIS BACTERIAL [None]
  - GROIN PAIN [None]
  - HYPERTHERMIA [None]
